FAERS Safety Report 4549585-5 (Version None)
Quarter: 2005Q1

REPORT INFORMATION
  Report Type: 
  Country: None (occurrence: None)
  Receive Date: 20050106
  Receipt Date: 20041228
  Transmission Date: 20050727
  Serious: Yes (Hospitalization, Other)
  Sender: FDA-Public Use
  Company Number: 2005000129

PATIENT
  Age: 62 Year
  Sex: Male

DRUGS (1)
  1. IRINOTECAN HCL [Suspect]
     Indication: RECTAL CANCER
     Dosage: INTRAVENOUS
     Route: 042
     Dates: start: 20030101

REACTIONS (3)
  - HAEMATURIA [None]
  - INFUSION RELATED REACTION [None]
  - THROMBOCYTOPENIA [None]
